FAERS Safety Report 24665242 (Version 1)
Quarter: 2024Q4

REPORT INFORMATION
  Report Type: Spontaneous
  Country: CN (occurrence: CN)
  Receive Date: 20241126
  Receipt Date: 20241126
  Transmission Date: 20250115
  Serious: Yes (Other)
  Sender: ACCORD
  Company Number: None

PATIENT
  Age: 65 Year
  Sex: Female
  Weight: 57 kg

DRUGS (4)
  1. TRASTUZUMAB [Suspect]
     Active Substance: TRASTUZUMAB
     Indication: Invasive breast carcinoma
     Dosage: 378 MILLIGRAM, QD
     Route: 042
     Dates: start: 20241028, end: 20241028
  2. PERJETA [Suspect]
     Active Substance: PERTUZUMAB
     Indication: Invasive breast carcinoma
     Dosage: 420 MILLIGRAM, QD
     Route: 042
     Dates: start: 20241028, end: 20241028
  3. CYCLOPHOSPHAMIDE [Suspect]
     Active Substance: CYCLOPHOSPHAMIDE
     Indication: Invasive breast carcinoma
     Dosage: 960 MILLIGRAM, QD
     Route: 042
     Dates: start: 20241028, end: 20241028
  4. DOCETAXEL [Suspect]
     Active Substance: DOCETAXEL
     Indication: Invasive breast carcinoma
     Dosage: 120 MILLIGRAM, QD
     Route: 042
     Dates: start: 20241028, end: 20241028

REACTIONS (1)
  - Myelosuppression [Recovering/Resolving]

NARRATIVE: CASE EVENT DATE: 20241104
